FAERS Safety Report 8309989-1 (Version None)
Quarter: 2012Q2

REPORT INFORMATION
  Report Type: 
  Country: None (occurrence: None)
  Receive Date: 20120425
  Receipt Date: 20120418
  Transmission Date: 20120825
  Serious: Yes (Other)
  Sender: FDA-Public Use
  Company Number: BR-PFIZER INC-2012097351

PATIENT
  Sex: Male

DRUGS (1)
  1. TOLTERODINE TARTRATE [Suspect]
     Indication: HYPERTONIC BLADDER
     Dosage: 4 MG (ONE CAPSULE), 1X/DAY
     Route: 048
     Dates: start: 20120415, end: 20120417

REACTIONS (7)
  - NAUSEA [None]
  - RETCHING [None]
  - ABDOMINAL PAIN [None]
  - HEADACHE [None]
  - INSOMNIA [None]
  - BEDRIDDEN [None]
  - DIZZINESS [None]
